FAERS Safety Report 25262156 (Version 1)
Quarter: 2025Q2

REPORT INFORMATION
  Report Type: Spontaneous
  Country: NL (occurrence: NL)
  Receive Date: 20250502
  Receipt Date: 20250502
  Transmission Date: 20250717
  Serious: Yes (Hospitalization)
  Sender: TEVA
  Company Number: None

PATIENT
  Age: 76 Year
  Sex: Female
  Weight: 90 kg

DRUGS (1)
  1. AMLODIPINE [Suspect]
     Active Substance: AMLODIPINE BESYLATE
     Indication: Dyspnoea exertional
     Dosage: 1 X PER DAY/ BRAND NAME NOT SPECIFIED
     Route: 048
     Dates: start: 20250409

REACTIONS (3)
  - Headache [Recovered/Resolved]
  - Loss of consciousness [Recovered/Resolved]
  - Muscle spasms [Recovered/Resolved]
